FAERS Safety Report 7363826-0 (Version None)
Quarter: 2011Q1

REPORT INFORMATION
  Report Type: 
  Country: None (occurrence: None)
  Receive Date: 20110321
  Receipt Date: 20110308
  Transmission Date: 20110831
  Serious: Yes (Other)
  Sender: FDA-Public Use
  Company Number: ES-JNJFOC-20110305576

PATIENT
  Age: 32 Year
  Sex: Female

DRUGS (3)
  1. CETIRIZINE HYDROCHLORIDE [Suspect]
     Indication: PRODUCT USED FOR UNKNOWN INDICATION
     Route: 065
  2. DESLORATADINE [Suspect]
     Indication: NASOPHARYNGITIS
     Route: 048
  3. CETIRIZINE HYDROCHLORIDE [Suspect]
     Route: 065

REACTIONS (2)
  - URTICARIA [None]
  - ALLERGY TEST POSITIVE [None]
